FAERS Safety Report 14039317 (Version 3)
Quarter: 2017Q4

REPORT INFORMATION
  Report Type: Spontaneous
  Country: FI (occurrence: FI)
  Receive Date: 20171004
  Receipt Date: 20171215
  Transmission Date: 20180321
  Serious: Yes (Life-Threatening, Hospitalization, Other)
  Sender: FDA-Public Use
  Company Number: FI-AMGEN-FINSP2017149284

PATIENT
  Age: 25 Year
  Sex: Female

DRUGS (4)
  1. CALCICHEW D3 FORTE SITRUUNA [Concomitant]
     Dosage: 2 DF, DAILY
     Route: 048
  2. BURANA [Concomitant]
     Active Substance: IBUPROFEN
     Dosage: UNK UNK, AS NEEDED
     Route: 048
  3. CYPRETYL [Concomitant]
     Dosage: UNK
     Dates: start: 2010, end: 20170720
  4. ENBREL [Suspect]
     Active Substance: ETANERCEPT
     Indication: RHEUMATOID ARTHRITIS
     Dosage: 50 MG, WEEKLY
     Route: 058
     Dates: start: 20130125, end: 20170720

REACTIONS (2)
  - Adenoma benign [Not Recovered/Not Resolved]
  - Breast cancer [Recovered/Resolved with Sequelae]

NARRATIVE: CASE EVENT DATE: 20170626
